FAERS Safety Report 4316420-X (Version None)
Quarter: 2004Q1

REPORT INFORMATION
  Report Type: 
  Country: None (occurrence: None)
  Receive Date: 20040311
  Receipt Date: 20040226
  Transmission Date: 20041129
  Serious: Yes (Other)
  Sender: FDA-Public Use
  Company Number: HQWYE587709APR03

PATIENT
  Age: 48 Year
  Sex: Male

DRUGS (15)
  1. PANTOZOL (PANTOPRAZOLE, TABLET, DELAYED RELEASE) [Suspect]
     Dosage: 40 MG 1X PER 1 DAY ORAL
     Route: 048
     Dates: start: 20030118, end: 20030124
  2. PANTOZOL (PANTOPRAZOLE, INJECTION) [Suspect]
     Dosage: 40 MG 1X PER 1 DAY INTRAVENOUS
     Route: 042
     Dates: start: 20030125, end: 20030207
  3. LASIX [Concomitant]
  4. ACETYLCYSTEINE [Concomitant]
  5. SULTANOL (SALBUTAMOL) [Concomitant]
  6. PULMICORT [Concomitant]
  7. HEPARIN [Concomitant]
  8. DIGITOXIN INJ [Concomitant]
  9. HYDROCORTISONE [Concomitant]
  10. TAZOBAC (PIPERACILLIN/TAZOBACTAM) [Concomitant]
  11. UNSPECIFIED VITAMINS [Concomitant]
  12. UNACID (AMPICILLIN SODIUM/SULBACTAM SODIUM) [Concomitant]
  13. TAVANIC (LEVOFLOXACIN) [Concomitant]
  14. TARGOCID [Concomitant]
  15. MERONEM [Concomitant]

REACTIONS (6)
  - CATHETER RELATED INFECTION [None]
  - COLONIC HAEMORRHAGE [None]
  - PHLEBOTHROMBOSIS [None]
  - RASH [None]
  - RHABDOMYOLYSIS [None]
  - STAPHYLOCOCCAL INFECTION [None]
